FAERS Safety Report 19578286 (Version 1)
Quarter: 2021Q3

REPORT INFORMATION
  Report Type: Spontaneous
  Country: AT (occurrence: AT)
  Receive Date: 20210719
  Receipt Date: 20210719
  Transmission Date: 20211014
  Serious: Yes (Other)
  Sender: FDA-Public Use
  Company Number: AT-JNJFOC-20210723809

PATIENT
  Age: 33 Year
  Sex: Male
  Weight: 88 kg

DRUGS (5)
  1. WELLBUTRIN [Concomitant]
     Active Substance: BUPROPION HYDROCHLORIDE
     Indication: DEPRESSION
     Dosage: 1?0?0?0
     Route: 065
     Dates: start: 20201111, end: 20201202
  2. SPRAVATO [Suspect]
     Active Substance: ESKETAMINE
     Indication: DEPRESSION
     Dosage: 8 GABEN VON SPRAVATO: 2X 28 MG AN 3 TAGEN, 3X 28 MG AN 2 TAGEN, DANN 2X 28 MG AN 3 TAGEN
     Dates: start: 20201112, end: 20201210
  3. ESCITALOPRAM [Concomitant]
     Active Substance: ESCITALOPRAM OXALATE
     Indication: DEPRESSION
     Dosage: 1?0?0?0; AB 14.11.20: 2?0?0?0
     Route: 065
     Dates: start: 20201107, end: 20201217
  4. MIRTABENE [Concomitant]
     Active Substance: MIRTAZAPINE
     Indication: DEPRESSION
     Dosage: 0?0?0?1
     Dates: start: 20201116, end: 20201119
  5. RIVOTRIL [Concomitant]
     Active Substance: CLONAZEPAM
     Indication: SLEEP DISORDER
     Dosage: 0?0?0?1
     Dates: start: 20201130

REACTIONS (1)
  - Drug ineffective [Recovered/Resolved]

NARRATIVE: CASE EVENT DATE: 20201210
